FAERS Safety Report 9883344 (Version 2)
Quarter: 2014Q2

REPORT INFORMATION
  Report Type: Report from Study
  Country: FR (occurrence: FR)
  Receive Date: 20140210
  Receipt Date: 20140519
  Transmission Date: 20141212
  Serious: Yes (Hospitalization)
  Sender: FDA-Public Use
  Company Number: FR-ROCHE-1341928

PATIENT
  Age: 64 Year
  Sex: Female
  Weight: 51 kg

DRUGS (6)
  1. RITUXIMAB [Suspect]
     Indication: CHRONIC LYMPHOCYTIC LEUKAEMIA
     Route: 042
     Dates: start: 20130822, end: 20131219
  2. BENDAMUSTINE [Suspect]
     Indication: CHRONIC LYMPHOCYTIC LEUKAEMIA
     Route: 042
     Dates: start: 20130822, end: 20140115
  3. ZELITREX [Concomitant]
     Route: 048
     Dates: start: 20130822
  4. WELLVONE [Concomitant]
     Route: 048
     Dates: start: 20130822
  5. LEDERFOLINE [Concomitant]
     Route: 048
     Dates: start: 20130822
  6. INEXIUM [Concomitant]
     Route: 048
     Dates: start: 20130822

REACTIONS (2)
  - Hypoxia [Recovered/Resolved]
  - Pleural infection bacterial [Recovered/Resolved]
